FAERS Safety Report 20697609 (Version 1)
Quarter: 2022Q2

REPORT INFORMATION
  Report Type: Spontaneous
  Country: MY (occurrence: MY)
  Receive Date: 20220411
  Receipt Date: 20220411
  Transmission Date: 20220721
  Serious: Yes (Other)
  Sender: FDA-Public Use
  Company Number: MY-002147023-NVSC2022MY073443

PATIENT
  Age: 63 Year
  Sex: Male

DRUGS (1)
  1. RANIBIZUMAB [Suspect]
     Active Substance: RANIBIZUMAB
     Indication: Polypoidal choroidal vasculopathy
     Dosage: UNK (6 DOSES)
     Route: 065

REACTIONS (2)
  - Cataract [Unknown]
  - Off label use [Unknown]
